FAERS Safety Report 9345954 (Version 1)
Quarter: 2013Q2

REPORT INFORMATION
  Report Type: Spontaneous
  Country: US (occurrence: US)
  Receive Date: 20130613
  Receipt Date: 20130613
  Transmission Date: 20140414
  Serious: No
  Sender: FDA-Public Use
  Company Number: US-BAYER-2013-070171

PATIENT
  Age: 85 Year
  Sex: Male

DRUGS (3)
  1. ALEVE CAPLET [Suspect]
     Indication: ARTHRITIS
     Route: 048
  2. ALEVE CAPLET [Suspect]
     Indication: ARTHRITIS
     Dosage: 3 DF, DAILY
     Route: 048
  3. HYDROCHLOROTHIAZIDE [Concomitant]

REACTIONS (4)
  - Rash [Not Recovered/Not Resolved]
  - Pruritus [Not Recovered/Not Resolved]
  - Urticaria [Not Recovered/Not Resolved]
  - Rash pruritic [Not Recovered/Not Resolved]
